FAERS Safety Report 6300584-2 (Version None)
Quarter: 2009Q3

REPORT INFORMATION
  Report Type: 
  Country: None (occurrence: None)
  Receive Date: 20090806
  Receipt Date: 20090617
  Transmission Date: 20100115
  Serious: No
  Sender: FDA-Public Use
  Company Number: US-ABBOTT-09P-163-0580667-00

PATIENT
  Sex: Female
  Weight: 85.9 kg

DRUGS (5)
  1. DEPAKOTE ER [Suspect]
     Indication: AFFECTIVE DISORDER
     Route: 048
  2. INVEGA [Concomitant]
     Indication: PSYCHOTIC DISORDER
     Route: 048
  3. LEVOTHYROXINE [Concomitant]
     Indication: HYPOTHYROIDISM
     Route: 048
  4. NORVASC [Concomitant]
     Indication: HYPERTENSION
     Route: 048
  5. LISINOPRIL [Concomitant]
     Indication: HYPERTENSION
     Route: 048

REACTIONS (1)
  - HYPONATRAEMIA [None]
